FAERS Safety Report 5266038-X (Version None)
Quarter: 2007Q1

REPORT INFORMATION
  Report Type: 
  Country: None (occurrence: None)
  Receive Date: 20070313
  Receipt Date: 20070313
  Transmission Date: 20070707
  Serious: Yes (Hospitalization)
  Sender: FDA-Public Use
  Company Number: None

PATIENT
  Sex: Female
  Weight: 86.2 kg

DRUGS (8)
  1. CISPLATIN [Suspect]
     Dosage: 68 MG
  2. GEMCITABINE HCL [Suspect]
     Dosage: 1940 MG
  3. TAXOL [Suspect]
     Dosage: 73 MG
  4. BENICAR [Concomitant]
  5. GAVISCON [Concomitant]
  6. IBUPROFEN [Concomitant]
  7. NEXIUM [Concomitant]
  8. WELLBUTRIN [Concomitant]

REACTIONS (5)
  - CEREBROVASCULAR ACCIDENT [None]
  - DIZZINESS [None]
  - FATIGUE [None]
  - PYREXIA [None]
  - WHITE BLOOD CELL COUNT DECREASED [None]
